FAERS Safety Report 12186330 (Version 2)
Quarter: 2016Q2

REPORT INFORMATION
  Report Type: Spontaneous
  Country: US (occurrence: US)
  Receive Date: 20160317
  Receipt Date: 20160404
  Transmission Date: 20160815
  Serious: Yes (Hospitalization)
  Sender: FDA-Public Use
  Company Number: PHEH2016US005709

PATIENT
  Age: 68 Year
  Sex: Male
  Weight: 101 kg

DRUGS (3)
  1. VELCADE [Concomitant]
     Active Substance: BORTEZOMIB
     Indication: PLASMA CELL MYELOMA
     Dosage: 1.3 MG/M2, (DAYS 1, 4, 8 AND 10)
     Route: 058
     Dates: start: 20160104, end: 201602
  2. FARYDAK [Suspect]
     Active Substance: PANOBINOSTAT
     Indication: PLASMA CELL MYELOMA
     Dosage: 20 MG, (DAYS 1, 3, 5, 8, 10 AND 12)
     Route: 048
     Dates: start: 20160104
  3. DECADRON [Concomitant]
     Active Substance: DEXAMETHASONE
     Indication: PLASMA CELL MYELOMA
     Dosage: 12 MG, (DAYS 1, 4, 8 AND 11)
     Route: 048
     Dates: start: 20160104, end: 201602

REACTIONS (7)
  - Sepsis [Unknown]
  - Chills [Unknown]
  - Malaise [Unknown]
  - Decreased appetite [Unknown]
  - Pyrexia [Recovered/Resolved]
  - Tachycardia [Unknown]
  - Hypotension [Unknown]

NARRATIVE: CASE EVENT DATE: 20160122
